FAERS Safety Report 5276877-7 (Version None)
Quarter: 2007Q1

REPORT INFORMATION
  Report Type: 
  Country: None (occurrence: None)
  Receive Date: 20070327
  Receipt Date: 20070320
  Transmission Date: 20070707
  Serious: Yes (Hospitalization)
  Sender: FDA-Public Use
  Company Number: FR-AVENTIS-200711022FR

PATIENT
  Age: 86 Year
  Sex: Female

DRUGS (5)
  1. DI-ANTALVIC                        /00220901/ [Suspect]
     Indication: SPINAL DISORDER
     Route: 048
     Dates: start: 20061225, end: 20070114
  2. LASILIX                            /00032601/ [Suspect]
     Route: 048
     Dates: end: 20070118
  3. PREVISCAN                          /00789001/ [Concomitant]
     Route: 048
  4. LOXEN [Concomitant]
     Route: 048
     Dates: end: 20070118
  5. ACTISKENAN [Concomitant]
     Indication: SPINAL DISORDER
     Route: 048
     Dates: start: 20061225, end: 20070107

REACTIONS (3)
  - CONFUSIONAL STATE [None]
  - FAECALOMA [None]
  - URINARY RETENTION [None]
